FAERS Safety Report 9738886 (Version 1)
Quarter: 2013Q4

REPORT INFORMATION
  Report Type: Spontaneous
  Country: ZA (occurrence: ZA)
  Receive Date: 20131209
  Receipt Date: 20131209
  Transmission Date: 20140711
  Serious: Yes (Other)
  Sender: FDA-Public Use
  Company Number: ZA-JNJFOC-20131202511

PATIENT
  Sex: Female

DRUGS (1)
  1. REVELLEX [Suspect]
     Indication: CROHN^S DISEASE
     Route: 042

REACTIONS (2)
  - Herpes virus infection [Unknown]
  - Subcutaneous abscess [Unknown]
